FAERS Safety Report 24560326 (Version 2)
Quarter: 2024Q4

REPORT INFORMATION
  Report Type: Spontaneous
  Country: US (occurrence: US)
  Receive Date: 20241029
  Receipt Date: 20241118
  Transmission Date: 20250114
  Serious: No
  Sender: ASTELLAS
  Company Number: US-ASTELLAS-2024-AER-014306

PATIENT
  Age: 72 Year
  Sex: Female

DRUGS (4)
  1. MYRBETRIQ [Suspect]
     Active Substance: MIRABEGRON
     Indication: Relapsing multiple sclerosis
     Dosage: (TOTAL DOSE 75 MG (50MG + 25 MG)) ONCE DAILY FOR TWO DAYS IN A ROW ONCE EVERY 3 MONTHS
     Route: 065
  2. MYRBETRIQ [Suspect]
     Active Substance: MIRABEGRON
     Indication: Urinary retention
  3. MYRBETRIQ [Suspect]
     Active Substance: MIRABEGRON
     Indication: Relapsing multiple sclerosis
     Dosage: (TOTAL DOSE 75 MG (50MG + 25 MG)) ONCE DAILY FOR TWO DAYS IN A ROW ONCE EVERY 3 MONTHS
     Route: 065
  4. MYRBETRIQ [Suspect]
     Active Substance: MIRABEGRON
     Indication: Urinary retention

REACTIONS (2)
  - Inappropriate schedule of product administration [Unknown]
  - Overdose [Unknown]
